FAERS Safety Report 6851241-5 (Version None)
Quarter: 2010Q3

REPORT INFORMATION
  Report Type: 
  Country: None (occurrence: None)
  Receive Date: 20100717
  Receipt Date: 20080109
  Transmission Date: 20110219
  Serious: No
  Sender: FDA-Public Use
  Company Number: US-PFIZER INC-2008005097

PATIENT
  Sex: Male
  Weight: 68 kg

DRUGS (3)
  1. CHANTIX [Suspect]
     Indication: SMOKING CESSATION THERAPY
     Route: 048
     Dates: start: 20071206
  2. HYDROCODONE BITARTRATE AND IBUPROFEN [Suspect]
     Indication: PAIN
     Route: 048
     Dates: start: 20071027
  3. DIAZEPAM [Concomitant]
     Dates: start: 20000101

REACTIONS (1)
  - SOMNOLENCE [None]
